FAERS Safety Report 9116053 (Version 1)
Quarter: 2013Q1

REPORT INFORMATION
  Report Type: Spontaneous
  Country: US (occurrence: US)
  Receive Date: 20130225
  Receipt Date: 20130225
  Transmission Date: 20140127
  Serious: Yes (Hospitalization)
  Sender: FDA-Public Use
  Company Number: US-BANPHARM-20130698

PATIENT
  Age: 90 Year
  Sex: Male
  Weight: 65.77 kg

DRUGS (4)
  1. ALEVE [Suspect]
     Dosage: 1 DF, PRN
     Route: 048
     Dates: start: 2007
  2. LISINOPRIL [Concomitant]
  3. ECOTRIN 325 MG ASPIRIN [Concomitant]
  4. ZANTAC [Concomitant]

REACTIONS (3)
  - Cerebrovascular accident [Recovered/Resolved]
  - Hypertension [Not Recovered/Not Resolved]
  - Dizziness [Recovered/Resolved]
